FAERS Safety Report 18563508 (Version 1)
Quarter: 2020Q4

REPORT INFORMATION
  Report Type: Other
  Country: PK (occurrence: PK)
  Receive Date: 20201201
  Receipt Date: 20201201
  Transmission Date: 20210114
  Serious: Yes (Other)
  Sender: FDA-Public Use
  Company Number: PK-ROCHE-2719952

PATIENT

DRUGS (2)
  1. CEFTRIAXONE. [Suspect]
     Active Substance: CEFTRIAXONE
     Indication: RENAL TRANSPLANT
     Route: 065
  2. RITUXIMAB. [Suspect]
     Active Substance: RITUXIMAB
     Indication: RENAL TRANSPLANT
     Route: 065

REACTIONS (4)
  - Urinary tract infection [Unknown]
  - Transplant failure [Unknown]
  - Drug resistance [Unknown]
  - Cytomegalovirus viraemia [Unknown]
